FAERS Safety Report 4970228-0 (Version None)
Quarter: 2006Q2

REPORT INFORMATION
  Report Type: 
  Country: None (occurrence: None)
  Receive Date: 20060406
  Receipt Date: 20060327
  Transmission Date: 20061013
  Serious: Yes (Other)
  Sender: FDA-Public Use
  Company Number: 2006042556

PATIENT
  Sex: 0

DRUGS (2)
  1. LYRICA [Suspect]
     Indication: ILL-DEFINED DISORDER
     Dosage: ORAL
     Route: 048
  2. OXYCODONE [Concomitant]

REACTIONS (3)
  - DYSPNOEA [None]
  - HYPERTENSIVE CRISIS [None]
  - TACHYCARDIA [None]
